FAERS Safety Report 5602193-7 (Version None)
Quarter: 2008Q1

REPORT INFORMATION
  Report Type: 
  Country: None (occurrence: None)
  Receive Date: 20080125
  Receipt Date: 20080118
  Transmission Date: 20080703
  Serious: Yes (Other)
  Sender: FDA-Public Use
  Company Number: BR-ASTRAZENECA-2008UW01491

PATIENT
  Age: 61 Year
  Sex: Female
  Weight: 86 kg

DRUGS (2)
  1. ARIMIDEX [Suspect]
     Indication: BREAST CANCER
     Route: 048
     Dates: start: 20060801
  2. SELOPRESS [Concomitant]
     Indication: HYPERTENSION
     Route: 048
     Dates: start: 20070901

REACTIONS (2)
  - ARTHRALGIA [None]
  - LUNG NEOPLASM [None]
